FAERS Safety Report 6169940-X (Version None)
Quarter: 2009Q2

REPORT INFORMATION
  Report Type: 
  Country: None (occurrence: None)
  Receive Date: 20090428
  Receipt Date: 20090421
  Transmission Date: 20091009
  Serious: Yes (Disabling, Other)
  Sender: FDA-Public Use
  Company Number: BE-PFIZER INC-2009202879

PATIENT

DRUGS (1)
  1. SUNITINIB MALATE [Suspect]

REACTIONS (1)
  - DEAFNESS [None]
